FAERS Safety Report 23353595 (Version 1)
Quarter: 2024Q1

REPORT INFORMATION
  Report Type: Report from Study
  Country: CO (occurrence: CO)
  Receive Date: 20240101
  Receipt Date: 20240101
  Transmission Date: 20240410
  Serious: Yes (Other)
  Sender: FDA-Public Use
  Company Number: CO-ABBVIE-5565906

PATIENT
  Age: 53 Year
  Sex: Male
  Weight: 82 kg

DRUGS (4)
  1. SKYRIZI [Suspect]
     Active Substance: RISANKIZUMAB-RZAA
     Indication: Psoriasis
     Dosage: FORM STRENGTH: 150 MILLIGRAM
     Route: 058
     Dates: start: 20221112
  2. MYLANTA [Concomitant]
     Active Substance: ALUMINUM HYDROXIDE\DIMETHICONE\MAGNESIUM HYDROXIDE
     Indication: Gastritis
     Dosage: UNKNOWN,?MYLANTA (MAGNESIUM HYDROXIDE + ALUMINUM HYDROXIDE+ SIMETICONE),?FREQUENCY TEXT: 3 TIMES ...
  3. OMEPRAZOLE [Concomitant]
     Active Substance: OMEPRAZOLE
     Indication: Gastritis
     Dosage: UNKNOWN,?FREQUENCY TEXT: DAILY FASTING?START DATE TEXT: BEFORE SKYRIZI
  4. LOSARTAN [Concomitant]
     Active Substance: LOSARTAN
     Indication: Hypertension
     Dosage: 50 MILLIGRAM,?START DATE TEXT: BEFORE SKYRIZI

REACTIONS (2)
  - Deafness unilateral [Not Recovered/Not Resolved]
  - Ear pain [Not Recovered/Not Resolved]

NARRATIVE: CASE EVENT DATE: 20231201
